FAERS Safety Report 19847789 (Version 2)
Quarter: 2021Q4

REPORT INFORMATION
  Report Type: Spontaneous
  Country: US (occurrence: US)
  Receive Date: 20210917
  Receipt Date: 20211028
  Transmission Date: 20220303
  Serious: No
  Sender: FDA-Public Use
  Company Number: US-PFIZER INC-202101144560

PATIENT
  Age: 59 Year
  Sex: Female

DRUGS (5)
  1. PROTONIX [Interacting]
     Active Substance: PANTOPRAZOLE SODIUM
     Dosage: UNK
  2. DIFLUCAN [Interacting]
     Active Substance: FLUCONAZOLE
     Dosage: UNK
  3. AUGMENTIN [Interacting]
     Active Substance: AMOXICILLIN\CLAVULANATE POTASSIUM
     Indication: Inflammation
     Dosage: UNK
  4. PREDNISONE [Interacting]
     Active Substance: PREDNISONE
     Indication: Inflammation
     Dosage: UNK
  5. PRILOSEC [Interacting]
     Active Substance: OMEPRAZOLE MAGNESIUM
     Dosage: UNK

REACTIONS (4)
  - Drug interaction [Unknown]
  - Bronchitis [Unknown]
  - Cough [Unknown]
  - Burning sensation [Unknown]
